FAERS Safety Report 11541011 (Version 1)
Quarter: 2015Q3

REPORT INFORMATION
  Report Type: Spontaneous
  Country: AU (occurrence: AU)
  Receive Date: 20150923
  Receipt Date: 20150923
  Transmission Date: 20151125
  Serious: Yes (Other)
  Sender: FDA-Public Use
  Company Number: PHHY2015AU112609

PATIENT
  Age: 77 Year
  Sex: Female

DRUGS (2)
  1. ATORVASTATIN SANDOZ [Suspect]
     Active Substance: ATORVASTATIN
     Indication: PRODUCT USED FOR UNKNOWN INDICATION
     Route: 065
  2. EZETIMIBE. [Suspect]
     Active Substance: EZETIMIBE
     Indication: PRODUCT USED FOR UNKNOWN INDICATION
     Route: 065

REACTIONS (5)
  - Myalgia [Recovering/Resolving]
  - Liver function test abnormal [Recovered/Resolved]
  - Formication [Recovering/Resolving]
  - Hypotonia [Recovering/Resolving]
  - Renal function test abnormal [Recovered/Resolved]

NARRATIVE: CASE EVENT DATE: 20141201
